FAERS Safety Report 14487802 (Version 3)
Quarter: 2018Q2

REPORT INFORMATION
  Report Type: Spontaneous
  Country: US (occurrence: US)
  Receive Date: 20180205
  Receipt Date: 20180605
  Transmission Date: 20180711
  Serious: No
  Sender: FDA-Public Use
  Company Number: US-PFIZER INC-2018043346

PATIENT
  Sex: Female

DRUGS (2)
  1. PREMPRO [Suspect]
     Active Substance: ESTROGENS, CONJUGATED\MEDROXYPROGESTERONE ACETATE
     Indication: MENOPAUSE
     Dosage: UNK[ESTROGENS CONJUGATED: 0.625MG/MEDROXYPROGESTERONE ACETATE: 5MG]
  2. PREMPRO [Suspect]
     Active Substance: ESTROGENS, CONJUGATED\MEDROXYPROGESTERONE ACETATE
     Indication: DEPRESSIVE SYMPTOM
     Dosage: UNK[ESTROGENS CONJUGATED: 0.625MG/MEDROXYPROGESTERONE ACETATE: 2.5MG]

REACTIONS (3)
  - Drug dispensing error [Unknown]
  - Metrorrhagia [Unknown]
  - Product use in unapproved indication [Unknown]
